FAERS Safety Report 11413115 (Version 1)
Quarter: 2015Q3

REPORT INFORMATION
  Report Type: Spontaneous
  Country: US (occurrence: US)
  Receive Date: 20150821
  Receipt Date: 20150821
  Transmission Date: 20151125
  Serious: No
  Sender: FDA-Public Use
  Company Number: US-ELI_LILLY_AND_COMPANY-US201107005372

PATIENT
  Age: 57 Year
  Sex: Female

DRUGS (3)
  1. HUMULIN R [Suspect]
     Active Substance: INSULIN HUMAN
     Indication: TYPE 2 DIABETES MELLITUS
     Dosage: 22 U, TID
     Route: 065
     Dates: start: 200607
  2. NOVOLOG [Concomitant]
     Active Substance: INSULIN ASPART
  3. LANTUS [Concomitant]
     Active Substance: INSULIN GLARGINE

REACTIONS (3)
  - Nonspecific reaction [Recovered/Resolved]
  - Rash [Recovered/Resolved]
  - Blood glucose increased [Recovering/Resolving]

NARRATIVE: CASE EVENT DATE: 20110717
